FAERS Safety Report 19619312 (Version 2)
Quarter: 2021Q3

REPORT INFORMATION
  Report Type: Spontaneous
  Country: US (occurrence: US)
  Receive Date: 20210728
  Receipt Date: 20210928
  Transmission Date: 20211014
  Serious: Yes (Other)
  Sender: FDA-Public Use
  Company Number: NVSC2021US167038

PATIENT
  Age: 66 Year
  Sex: Male
  Weight: 117.01 kg

DRUGS (1)
  1. PAZOPANIB [Suspect]
     Active Substance: PAZOPANIB
     Indication: PAPILLARY RENAL CELL CARCINOMA
     Dosage: 800 MG, UNKNOWN
     Route: 065

REACTIONS (5)
  - Blood creatine increased [Unknown]
  - Gout [Unknown]
  - Hepatotoxicity [Unknown]
  - Nephropathy toxic [Unknown]
  - Blood bilirubin increased [Unknown]
